FAERS Safety Report 6570280-5 (Version None)
Quarter: 2010Q1

REPORT INFORMATION
  Report Type: 
  Country: None (occurrence: None)
  Receive Date: 20100204
  Receipt Date: 20100126
  Transmission Date: 20100710
  Serious: Yes (Hospitalization, Disabling)
  Sender: FDA-Public Use
  Company Number: DE-PFIZER INC-2010011436

PATIENT
  Age: 10 Year
  Sex: Female
  Weight: 32 kg

DRUGS (2)
  1. SOMATROPIN [Suspect]
     Indication: TURNER'S SYNDROME
     Dosage: 1.4 MG, 1X/DAY
     Route: 058
     Dates: start: 20031216
  2. SOMATROPIN [Suspect]
     Dosage: 1.4 MG, 1X/DAY
     Route: 058
     Dates: start: 20091110

REACTIONS (3)
  - ADRENAL CARCINOMA [None]
  - DISEASE PROGRESSION [None]
  - METASTATIC NEOPLASM [None]
